FAERS Safety Report 5496384-6 (Version None)
Quarter: 2007Q4

REPORT INFORMATION
  Report Type: 
  Country: None (occurrence: None)
  Receive Date: 20071025
  Receipt Date: 20070402
  Transmission Date: 20080405
  Serious: No
  Sender: FDA-Public Use
  Company Number: A0645598A

PATIENT
  Age: 63 Year
  Sex: Male

DRUGS (4)
  1. ADVAIR DISKUS 100/50 [Suspect]
     Indication: CHRONIC OBSTRUCTIVE PULMONARY DISEASE
     Dosage: 1PUFF TWICE PER DAY
     Route: 055
     Dates: start: 20070308
  2. BLOOD PRESSURE MEDICATION [Concomitant]
  3. VITAMIN [Concomitant]
  4. PERCOCET [Concomitant]

REACTIONS (1)
  - DRY THROAT [None]
